FAERS Safety Report 25136790 (Version 1)
Quarter: 2025Q1

REPORT INFORMATION
  Report Type: Spontaneous
  Country: GB (occurrence: GB)
  Receive Date: 20250328
  Receipt Date: 20250328
  Transmission Date: 20250408
  Serious: Yes (Disabling, Other)
  Sender: BOEHRINGER INGELHEIM
  Company Number: GB-MHRA-WEBRADR-202503170623140430-JRPLC

PATIENT
  Age: 51 Year
  Sex: Male
  Weight: 125 kg

DRUGS (8)
  1. JARDIANCE [Suspect]
     Active Substance: EMPAGLIFLOZIN
     Indication: Hypertension
  2. MOUNJARO [Concomitant]
     Active Substance: TIRZEPATIDE
     Indication: ROHHAD syndrome
  3. OLMESARTAN [Concomitant]
     Active Substance: OLMESARTAN
     Indication: Blood pressure inadequately controlled
  4. TESTOSTERONE [Concomitant]
     Active Substance: TESTOSTERONE
     Indication: Secondary hypogonadism
  5. CABERGOLINE [Concomitant]
     Active Substance: CABERGOLINE
     Indication: Prolactin-producing pituitary tumour
  6. OMNITROPE [Concomitant]
     Active Substance: SOMATROPIN
     Indication: Growth hormone deficiency
  7. INDAPAMIDE [Concomitant]
     Active Substance: INDAPAMIDE
     Indication: Hypertension
  8. LEVOTHYROXINE [Concomitant]
     Active Substance: LEVOTHYROXINE
     Indication: Autoimmune hypothyroidism

REACTIONS (19)
  - Dyspnoea [Recovered/Resolved with Sequelae]
  - Urinary hesitation [Recovered/Resolved with Sequelae]
  - Pica [Recovered/Resolved]
  - Oxygen saturation decreased [Recovered/Resolved with Sequelae]
  - Micturition urgency [Recovered/Resolved with Sequelae]
  - Haematocrit increased [Not Recovered/Not Resolved]
  - Tunnel vision [Recovered/Resolved with Sequelae]
  - Dehydration [Not Recovered/Not Resolved]
  - Myalgia [Not Recovered/Not Resolved]
  - Palpitations [Not Recovered/Not Resolved]
  - Electrolyte imbalance [Recovered/Resolved with Sequelae]
  - Loss of libido [Not Recovered/Not Resolved]
  - Muscle spasms [Not Recovered/Not Resolved]
  - Anhedonia [Not Recovered/Not Resolved]
  - Erectile dysfunction [Not Recovered/Not Resolved]
  - Dysuria [Not Recovered/Not Resolved]
  - Hypoxia [Recovered/Resolved with Sequelae]
  - Cognitive disorder [Not Recovered/Not Resolved]
  - Rash [Not Recovered/Not Resolved]

NARRATIVE: CASE EVENT DATE: 20240803
